FAERS Safety Report 8483936 (Version 3)
Quarter: 2013Q2

REPORT INFORMATION
  Report Type: Spontaneous
  Country: US (occurrence: US)
  Receive Date: 20120330
  Receipt Date: 20130417
  Transmission Date: 20140414
  Serious: No
  Sender: FDA-Public Use
  Company Number: US-BIOGENIDEC-2012BI010121

PATIENT
  Age: 59 Year
  Sex: Female

DRUGS (1)
  1. TYSABRI [Suspect]
     Indication: MULTIPLE SCLEROSIS
     Route: 042
     Dates: start: 20110329, end: 20111201

REACTIONS (8)
  - Cataract [Recovered/Resolved]
  - Eye infection [Unknown]
  - Eye inflammation [Not Recovered/Not Resolved]
  - Photosensitivity reaction [Not Recovered/Not Resolved]
  - Vision blurred [Recovered/Resolved]
  - Visual impairment [Recovered/Resolved]
  - Hypertension [Recovered/Resolved]
  - Multiple sclerosis [Not Recovered/Not Resolved]
